FAERS Safety Report 15524848 (Version 1)
Quarter: 2018Q4

REPORT INFORMATION
  Report Type: Spontaneous
  Country: None (occurrence: US)
  Receive Date: 20181019
  Receipt Date: 20181019
  Transmission Date: 20190205
  Serious: No
  Sender: FDA-Public Use
  Company Number: US-PRESTIGE BRANDS -2056489

PATIENT

DRUGS (1)
  1. MONISTAT 3 COMBINATION PACK 3 OVULE INSERTS [Suspect]
     Active Substance: MICONAZOLE NITRATE

REACTIONS (4)
  - Inappropriate schedule of product administration [None]
  - Vulvovaginal swelling [None]
  - Condition aggravated [None]
  - Vulvovaginal pruritus [None]
